FAERS Safety Report 8583040-0 (Version None)
Quarter: 2012Q3

REPORT INFORMATION
  Report Type: 
  Country: None (occurrence: None)
  Receive Date: 20120727
  Receipt Date: 20120717
  Transmission Date: 20120928
  Serious: Yes (Other)
  Sender: FDA-Public Use
  Company Number: 1354500

PATIENT
  Age: 64 Year
  Sex: Male

DRUGS (2)
  1. OXALIPLATIN [Suspect]
     Indication: COLON CANCER
     Dosage: 20 ML MILLILITRE(S), INTRAVENOUS DRIP ; 40 ML MILLILITRE(S) INTRAVENOUS DRIP
     Route: 041
     Dates: start: 20120713, end: 20120713
  2. OXALIPLATIN [Suspect]
     Indication: COLON CANCER
     Dosage: 20 ML MILLILITRE(S), INTRAVENOUS DRIP ; 40 ML MILLILITRE(S) INTRAVENOUS DRIP
     Route: 041
     Dates: start: 20120713, end: 20120713

REACTIONS (2)
  - PRESYNCOPE [None]
  - THROAT TIGHTNESS [None]
